FAERS Safety Report 4855266-0 (Version None)
Quarter: 2005Q4

REPORT INFORMATION
  Report Type: 
  Country: None (occurrence: None)
  Receive Date: 20051214
  Receipt Date: 20051206
  Transmission Date: 20060501
  Serious: Yes (Hospitalization)
  Sender: FDA-Public Use
  Company Number: 220055

PATIENT
  Age: 63 Year
  Sex: Male

DRUGS (2)
  1. XOLAIR [Suspect]
     Indication: ASTHMA
     Dosage: Q2W,
     Dates: start: 20040301
  2. PRIMATENE MIST [Suspect]

REACTIONS (9)
  - ALOPECIA [None]
  - ARTHRALGIA [None]
  - ASTHMA [None]
  - CONDITION AGGRAVATED [None]
  - DIABETES MELLITUS [None]
  - DRUG HYPERSENSITIVITY [None]
  - INFECTION [None]
  - REACTION TO DRUG EXCIPIENTS [None]
  - WEIGHT INCREASED [None]
